FAERS Safety Report 9863717 (Version 1)
Quarter: 2014Q1

REPORT INFORMATION
  Report Type: Spontaneous
  Country: US (occurrence: US)
  Receive Date: 20140203
  Receipt Date: 20140203
  Transmission Date: 20141002
  Serious: Yes (Other)
  Sender: FDA-Public Use
  Company Number: US-ROXANE LABORATORIES, INC.-2014-RO-00120RO

PATIENT
  Age: 69 Year
  Sex: Male

DRUGS (7)
  1. AZATHIOPRINE [Suspect]
     Indication: RENAL TRANSPLANT
  2. PREDNISONE [Suspect]
     Indication: RENAL TRANSPLANT
  3. CAPECITABINE [Suspect]
     Indication: PROPHYLAXIS
  4. ASPIRIN [Concomitant]
     Indication: PRODUCT USED FOR UNKNOWN INDICATION
  5. ENALAPRIL [Concomitant]
     Indication: PRODUCT USED FOR UNKNOWN INDICATION
  6. SIMVASTATIN [Concomitant]
     Indication: PRODUCT USED FOR UNKNOWN INDICATION
  7. TAMSULOSIN [Concomitant]
     Indication: PRODUCT USED FOR UNKNOWN INDICATION

REACTIONS (3)
  - Actinic keratosis [Recovered/Resolved]
  - Myelodysplastic syndrome [Unknown]
  - Squamous cell carcinoma of skin [Recovered/Resolved]
